FAERS Safety Report 5147095-8 (Version None)
Quarter: 2006Q4

REPORT INFORMATION
  Report Type: 
  Country: None (occurrence: None)
  Receive Date: 20061103
  Receipt Date: 20061025
  Transmission Date: 20070319
  Serious: Yes (Other)
  Sender: FDA-Public Use
  Company Number: GB-2006-032227

PATIENT
  Age: 28 Year
  Sex: Female

DRUGS (1)
  1. MIRENA [Suspect]
     Indication: DRUG USE FOR UNKNOWN INDICATION
     Dosage: 20 UG, CONT, INTRA-UTERINE
     Route: 015

REACTIONS (8)
  - BLADDER PERFORATION [None]
  - CALCULUS BLADDER [None]
  - CONTRACEPTIVE DEVICE COMPLICATION [None]
  - HYPERTONIC BLADDER [None]
  - IUD MIGRATION [None]
  - TREATMENT NONCOMPLIANCE [None]
  - URINARY TRACT INFECTION [None]
  - UTERINE PERFORATION [None]
